FAERS Safety Report 15376170 (Version 3)
Quarter: 2018Q4

REPORT INFORMATION
  Report Type: Spontaneous
  Country: FR (occurrence: FR)
  Receive Date: 20180912
  Receipt Date: 20181116
  Transmission Date: 20190204
  Serious: Yes (Hospitalization, Other)
  Sender: FDA-Public Use
  Company Number: FR-009507513-1004FRA00135

PATIENT
  Age: 23 Year
  Sex: Male
  Weight: 49 kg

DRUGS (18)
  1. PEVARYL [Suspect]
     Active Substance: ECONAZOLE NITRATE
     Indication: RASH
     Dosage: 2 DF, UNK
     Route: 061
     Dates: start: 20090114
  2. IMIPENEM AND CILASTATIN [Suspect]
     Active Substance: CILASTATIN SODIUM\IMIPENEM
     Indication: ABSCESS
     Dosage: DOSAGE FORM: UNSPECIFIED
     Route: 042
     Dates: start: 20081222, end: 20090112
  3. EBASTINE [Suspect]
     Active Substance: EBASTINE
     Indication: RASH
     Dosage: DOSAGE FORM: UNSPECIFIED
     Route: 048
     Dates: start: 20090107
  4. REMICADE [Suspect]
     Active Substance: INFLIXIMAB
     Indication: CROHN^S DISEASE
     Dosage: 100 MG, UNK
     Route: 042
     Dates: start: 20090120
  5. VANCOMYCIN [Suspect]
     Active Substance: VANCOMYCIN
     Indication: ABSCESS
     Dosage: 2 G, QD
     Route: 042
     Dates: start: 20081222, end: 20090112
  6. VANCOMYCIN [Suspect]
     Active Substance: VANCOMYCIN
     Dosage: 32 GRAM, UNK
     Route: 042
     Dates: start: 20081220, end: 20090112
  7. CACIT [Suspect]
     Active Substance: CALCIUM\VITAMIN D
     Indication: PRODUCT USED FOR UNKNOWN INDICATION
     Dosage: 1 DOSAGE FORM, QD
     Route: 048
     Dates: start: 20081227
  8. SOLU-MEDROL [Suspect]
     Active Substance: METHYLPREDNISOLONE SODIUM SUCCINATE
     Indication: CROHN^S DISEASE
     Dosage: 60 MG, UNK (ALSO REPORTED AS DOSAGE FORM: UNSPECIFIED)
     Route: 048
     Dates: start: 20080811
  9. LOVENOX [Suspect]
     Active Substance: ENOXAPARIN SODIUM
     Indication: PRODUCT USED FOR UNKNOWN INDICATION
     Dosage: 1 DF, QD
     Route: 058
     Dates: start: 20081224
  10. TRIFLUCAN [Suspect]
     Active Substance: FLUCONAZOLE
     Indication: RASH
     Dosage: 100 MG, QD
     Route: 048
     Dates: start: 20090106, end: 20090118
  11. TRANXENE [Suspect]
     Active Substance: CLORAZEPATE DIPOTASSIUM
     Indication: ANXIETY
     Dosage: 1 DF, QD
     Route: 042
     Dates: start: 20081222, end: 20090123
  12. TRIFLUCAN [Suspect]
     Active Substance: FLUCONAZOLE
     Dosage: 200 MILLIGRAM, QD
     Route: 048
     Dates: start: 20090106, end: 20090130
  13. ALANINE [Suspect]
     Active Substance: ALANINE
     Indication: MALNUTRITION
     Dosage: DOSAGE FORM: UNSPECIFIED
     Route: 041
  14. AERIUS (DESLORATADINE) [Suspect]
     Active Substance: DESLORATADINE
     Indication: RASH
     Dosage: 1 DF, QD
     Route: 048
     Dates: start: 20090107
  15. SOLU-MEDROL [Suspect]
     Active Substance: METHYLPREDNISOLONE SODIUM SUCCINATE
     Dosage: 100 MILLIGRAM,UNK
     Route: 042
     Dates: start: 20090120
  16. SPECIAFOLDINE [Suspect]
     Active Substance: FOLIC ACID
     Indication: PRODUCT USED FOR UNKNOWN INDICATION
     Dosage: 3 DF, QD
     Route: 048
     Dates: start: 20081223
  17. ALANINE [Suspect]
     Active Substance: ALANINE
     Indication: PARENTERAL NUTRITION
     Dosage: 4000 ML, QD (ALSO REPORTED AS DOSAGE FORM: UNSPECIFIED)
     Route: 041
     Dates: start: 20081228, end: 20090207
  18. TRIFLUCAN [Suspect]
     Active Substance: FLUCONAZOLE
     Dosage: 200 MILLIGRAM, QD
     Route: 048
     Dates: start: 20090119, end: 20090130

REACTIONS (1)
  - Hepatitis [Recovering/Resolving]

NARRATIVE: CASE EVENT DATE: 20090106
